FAERS Safety Report 19720012 (Version 1)
Quarter: 2021Q3

REPORT INFORMATION
  Report Type: Spontaneous
  Country: US (occurrence: US)
  Receive Date: 20210818
  Receipt Date: 20210818
  Transmission Date: 20211014
  Serious: Yes (Hospitalization)
  Sender: FDA-Public Use
  Company Number: None

PATIENT
  Sex: Female

DRUGS (3)
  1. TOBRAMYCIN  300MG/5ML [Suspect]
     Active Substance: TOBRAMYCIN
     Indication: BRONCHIECTASIS
     Dosage: OTHER DOSE: INHALE 1  VIAL NEBULIZER BID ( AT LEAST 6 HOURS APART) FOR 28 DAYS ON AND 28 DAYS OFF.
     Route: 055
     Dates: start: 20200504
  2. OFEV [Concomitant]
     Active Substance: NINTEDANIB
  3. TOBRAMYCIN. [Concomitant]
     Active Substance: TOBRAMYCIN

REACTIONS (1)
  - Pneumonia [None]
